FAERS Safety Report 10272299 (Version 1)
Quarter: 2014Q3

REPORT INFORMATION
  Report Type: Spontaneous
  Country: GB (occurrence: GB)
  Receive Date: 20140702
  Receipt Date: 20140702
  Transmission Date: 20150326
  Serious: Yes (Death, Hospitalization)
  Sender: FDA-Public Use
  Company Number: GB-ROCHE-1422706

PATIENT
  Age: 22 Year
  Sex: Female

DRUGS (2)
  1. OSELTAMIVIR [Suspect]
     Active Substance: OSELTAMIVIR
     Indication: INFLUENZA
     Route: 065
  2. PULMOZYME [Suspect]
     Active Substance: DORNASE ALFA
     Indication: CYSTIC FIBROSIS
     Route: 065

REACTIONS (9)
  - Hepatic function abnormal [Unknown]
  - Respiratory distress [Unknown]
  - Multi-organ failure [Unknown]
  - Clostridium difficile colitis [Recovered/Resolved]
  - Respiratory failure [Unknown]
  - Influenza [Recovering/Resolving]
  - Maternal exposure during pregnancy [Unknown]
  - Death [Fatal]
  - Intussusception [Recovered/Resolved]
